FAERS Safety Report 20607562 (Version 1)
Quarter: 2022Q1

REPORT INFORMATION
  Report Type: Report from Study
  Country: TR (occurrence: TR)
  Receive Date: 20220317
  Receipt Date: 20220317
  Transmission Date: 20220423
  Serious: Yes (Hospitalization)
  Sender: FDA-Public Use
  Company Number: TR-ABBVIE-22K-161-4319777-00

PATIENT
  Sex: Male
  Weight: 80 kg

DRUGS (7)
  1. CARBIDOPA\LEVODOPA [Suspect]
     Active Substance: CARBIDOPA\LEVODOPA
     Indication: Parkinson^s disease
     Dosage: MORNING DOSE (ML): 6.50 CONTINUOUS DOSE (ML): 2.50 EXTRA DOSE (ML): 1.50
     Route: 050
     Dates: start: 20171113, end: 20220315
  2. CARBIDOPA\LEVODOPA [Suspect]
     Active Substance: CARBIDOPA\LEVODOPA
     Dosage: MORNING DOSE (ML): 6.50 CONTINUOUS DOSE (ML): 2.00 EXTRA DOSE (ML): 1.50
     Route: 050
     Dates: start: 20220315
  3. PANTO [Concomitant]
     Indication: Parkinson^s disease
     Route: 048
  4. EXELON PATCH [Concomitant]
     Active Substance: RIVASTIGMINE
     Indication: Parkinson^s disease
     Route: 062
  5. AMANTADINE SULFATE [Concomitant]
     Active Substance: AMANTADINE SULFATE
     Indication: Parkinson^s disease
     Route: 048
  6. SEROQUEL [Concomitant]
     Active Substance: QUETIAPINE FUMARATE
     Indication: Depression
     Route: 048
  7. FERRUM HAUSMANN FORT [Concomitant]
     Indication: Vitamin supplementation
     Route: 048

REACTIONS (3)
  - Cerebral haemorrhage [Recovered/Resolved]
  - Dyskinesia [Not Recovered/Not Resolved]
  - Stoma site discharge [Not Recovered/Not Resolved]
